FAERS Safety Report 6602424-0 (Version None)
Quarter: 2010Q1

REPORT INFORMATION
  Report Type: 
  Country: None (occurrence: None)
  Receive Date: 20100225
  Receipt Date: 20100215
  Transmission Date: 20100710
  Serious: Yes (Other)
  Sender: FDA-Public Use
  Company Number: PHHY2010BR09169

PATIENT
  Age: 15 Month
  Sex: Male

DRUGS (2)
  1. CYCLOSPORINE [Suspect]
     Indication: BONE MARROW TRANSPLANT
  2. CYCLOSPORINE [Suspect]
     Indication: PROPHYLAXIS AGAINST GRAFT VERSUS HOST DISEASE

REACTIONS (5)
  - ACUTE RESPIRATORY DISTRESS SYNDROME [None]
  - EPSTEIN-BARR VIRUS INFECTION [None]
  - GASTROINTESTINAL INFECTION [None]
  - MECHANICAL VENTILATION [None]
  - PARENTERAL NUTRITION [None]
